FAERS Safety Report 26121894 (Version 1)
Quarter: 2025Q4

REPORT INFORMATION
  Report Type: Spontaneous
  Country: US (occurrence: None)
  Receive Date: 20251204
  Receipt Date: 20251204
  Transmission Date: 20260118
  Serious: Yes (Hospitalization)
  Sender: FDA-CTU
  Company Number: None

PATIENT
  Age: 77 Year
  Sex: Male

DRUGS (6)
  1. LENALIDOMIDE [Suspect]
     Active Substance: LENALIDOMIDE
     Indication: Plasma cell myeloma
     Dosage: 25 MG DAILY ORAL ?
     Route: 048
     Dates: start: 20251112, end: 20251129
  2. PROCRIT [Concomitant]
     Active Substance: ERYTHROPOIETIN
  3. CALCITRIOL [Concomitant]
     Active Substance: CALCITRIOL
  4. DARZALEX [Concomitant]
     Active Substance: DARATUMUMAB
  5. CHOLECALCIFEROL [Concomitant]
     Active Substance: CHOLECALCIFEROL
  6. SIMVASTATIN [Concomitant]
     Active Substance: SIMVASTATIN

REACTIONS (7)
  - Neoplasm [None]
  - Tremor [None]
  - Dyspnoea [None]
  - Speech disorder [None]
  - Blood potassium decreased [None]
  - Platelet count decreased [None]
  - White blood cell count decreased [None]

NARRATIVE: CASE EVENT DATE: 20251129
